FAERS Safety Report 9640357 (Version 1)
Quarter: 2013Q4

REPORT INFORMATION
  Report Type: Spontaneous
  Country: US (occurrence: None)
  Receive Date: 20131022
  Receipt Date: 20131022
  Transmission Date: 20140711
  Serious: Yes (Other)
  Sender: FDA-Public Use
  Company Number: None

PATIENT
  Age: 36 Year
  Sex: 0
  Weight: 68.04 kg

DRUGS (1)
  1. ERYTHROMYCIN AND BENZOYL PEROXIDE [Suspect]
     Indication: ACNE

REACTIONS (1)
  - Application site rash [None]
